FAERS Safety Report 22372465 (Version 2)
Quarter: 2023Q2

REPORT INFORMATION
  Report Type: Spontaneous
  Country: US (occurrence: US)
  Receive Date: 20230526
  Receipt Date: 20230601
  Transmission Date: 20230721
  Serious: No
  Sender: FDA-Public Use
  Company Number: US-IDORSIA-005276-2023-US

PATIENT
  Age: 74 Year
  Sex: Male

DRUGS (2)
  1. QUVIVIQ [Suspect]
     Active Substance: DARIDOREXANT
     Indication: Insomnia
     Dosage: 25 MG, QD
     Route: 048
     Dates: start: 20230429, end: 20230429
  2. BACLOFEN [Concomitant]
     Active Substance: BACLOFEN
     Indication: Muscle relaxant therapy
     Dosage: UNK, QD

REACTIONS (3)
  - Nightmare [Recovered/Resolved]
  - Hallucination [Recovered/Resolved]
  - Sleep paralysis [Recovered/Resolved]

NARRATIVE: CASE EVENT DATE: 20230429
